FAERS Safety Report 9973707 (Version 1)
Quarter: 2014Q1

REPORT INFORMATION
  Report Type: Spontaneous
  Country: US (occurrence: US)
  Receive Date: 20140306
  Receipt Date: 20140306
  Transmission Date: 20141002
  Serious: No
  Sender: FDA-Public Use
  Company Number: US-BAYER-2014-029213

PATIENT
  Age: 86 Year
  Sex: Male

DRUGS (1)
  1. CIPRO [Suspect]
     Indication: EYE INFECTION
     Dosage: 500 MG, BID
     Route: 048
     Dates: start: 201402

REACTIONS (1)
  - Drug dose omission [None]
